FAERS Safety Report 21919357 (Version 3)
Quarter: 2023Q1

REPORT INFORMATION
  Report Type: Spontaneous
  Country: US (occurrence: US)
  Receive Date: 20230127
  Receipt Date: 20230328
  Transmission Date: 20230417
  Serious: Yes (Other)
  Sender: FDA-Public Use
  Company Number: US-SA-SAC20230120001482

PATIENT
  Age: 71 Year
  Sex: Male

DRUGS (5)
  1. FLOMAX [Suspect]
     Active Substance: TAMSULOSIN HYDROCHLORIDE
     Indication: Dysuria
     Dosage: UNK
     Route: 065
     Dates: start: 20221129
  2. SILODOSIN [Suspect]
     Active Substance: SILODOSIN
     Indication: Product used for unknown indication
     Dosage: UNK
  3. ORGOVYX [Suspect]
     Active Substance: RELUGOLIX
     Indication: Prostate cancer
     Dosage: 120 MG, QD
     Route: 048
     Dates: start: 20221115
  4. ORGOVYX [Suspect]
     Active Substance: RELUGOLIX
     Dosage: UNK
  5. MIRALAX [Concomitant]
     Active Substance: POLYETHYLENE GLYCOL 3350
     Indication: Constipation

REACTIONS (21)
  - Myocardial injury [Unknown]
  - Mental impairment [Unknown]
  - Bone pain [Unknown]
  - Male genital atrophy [Recovering/Resolving]
  - Aphasia [Not Recovered/Not Resolved]
  - Dizziness [Unknown]
  - Hot flush [Not Recovered/Not Resolved]
  - Loss of libido [Unknown]
  - Constipation [Unknown]
  - Fatigue [Unknown]
  - Weight increased [Unknown]
  - Amnesia [Unknown]
  - Dysuria [Recovering/Resolving]
  - Non-cardiac chest pain [Unknown]
  - Gingivitis [Unknown]
  - Pain in extremity [Recovered/Resolved]
  - Drug hypersensitivity [Unknown]
  - Musculoskeletal chest pain [Unknown]
  - Pain [Unknown]
  - Blood glucose abnormal [Unknown]
  - Blood testosterone abnormal [Unknown]

NARRATIVE: CASE EVENT DATE: 20230112
